FAERS Safety Report 10210025 (Version 1)
Quarter: 2014Q2

REPORT INFORMATION
  Report Type: Spontaneous
  Country: JP (occurrence: JP)
  Receive Date: 20140602
  Receipt Date: 20140602
  Transmission Date: 20141212
  Serious: Yes (Death)
  Sender: FDA-Public Use
  Company Number: JP-SA-2014SA069174

PATIENT
  Age: 24 Month
  Sex: Male
  Weight: 5 kg

DRUGS (1)
  1. CEREZYME [Suspect]
     Indication: GAUCHER^S DISEASE
     Dosage: DOSE : 800 U DOSE:160 UNIT(S)/KILOGRAM BODYWEIGHT
     Route: 041
     Dates: start: 20130827

REACTIONS (1)
  - Death [Fatal]
